FAERS Safety Report 14016761 (Version 2)
Quarter: 2017Q4

REPORT INFORMATION
  Report Type: Spontaneous
  Country: DE (occurrence: DE)
  Receive Date: 20170927
  Receipt Date: 20171026
  Transmission Date: 20180321
  Serious: Yes (Hospitalization)
  Sender: FDA-Public Use
  Company Number: DE-CURIUM PHARMACEUTICALS-2027928

PATIENT
  Age: 76 Year
  Sex: Female

DRUGS (2)
  1. REGADENOSON CARDIAC PHARMACOLOGIC STRESSOR [Concomitant]
     Active Substance: REGADENOSON
     Route: 042
     Dates: start: 20170829, end: 20170829
  2. TECHNETIUM TC 99 M SESTAMIBI [Suspect]
     Active Substance: TECHNETIUM TC-99M SESTAMIBI
     Indication: SCAN MYOCARDIAL PERFUSION
     Route: 040
     Dates: start: 20170829, end: 20170829

REACTIONS (2)
  - Vomiting [Recovered/Resolved]
  - Dehydration [Recovered/Resolved]

NARRATIVE: CASE EVENT DATE: 20170829
